FAERS Safety Report 4565479-3 (Version None)
Quarter: 2005Q1

REPORT INFORMATION
  Report Type: 
  Country: None (occurrence: None)
  Receive Date: 20050125
  Receipt Date: 20050125
  Transmission Date: 20050727
  Serious: Yes (Other)
  Sender: FDA-Public Use
  Company Number: None

PATIENT
  Age: 45 Year
  Sex: Female
  Weight: 68.0396 kg

DRUGS (4)
  1. GEODON [Suspect]
     Indication: HALLUCINATION, AUDITORY
     Dosage: 20MG  PO  ORAL
     Route: 048
     Dates: start: 20041231, end: 20050104
  2. GEODON [Suspect]
     Indication: IRRITABILITY
     Dosage: 20MG  PO  ORAL
     Route: 048
     Dates: start: 20041231, end: 20050104
  3. ZOLOFT [Concomitant]
  4. TOPAMAX [Concomitant]

REACTIONS (1)
  - BLOOD GLUCOSE DECREASED [None]
